FAERS Safety Report 6559214-7 (Version None)
Quarter: 2010Q1

REPORT INFORMATION
  Report Type: 
  Country: None (occurrence: None)
  Receive Date: 20100129
  Receipt Date: 20091016
  Transmission Date: 20100710
  Serious: No
  Sender: FDA-Public Use
  Company Number: US-ABBOTT-08P-163-0456862-00

PATIENT
  Sex: Female
  Weight: 54.48 kg

DRUGS (2)
  1. HUMIRA [Suspect]
     Indication: CROHN'S DISEASE
     Dosage: ONE APPLICATION EVERY OTHER WEEK
     Route: 050
     Dates: start: 20071101
  2. AZASAN [Concomitant]
     Indication: CROHN'S DISEASE
     Dates: start: 20070501

REACTIONS (4)
  - ABSCESS [None]
  - FURUNCLE [None]
  - NASAL DRYNESS [None]
  - RASH MACULAR [None]
